FAERS Safety Report 9683924 (Version 1)
Quarter: 2013Q4

REPORT INFORMATION
  Report Type: Spontaneous
  Country: US (occurrence: US)
  Receive Date: 20131112
  Receipt Date: 20131112
  Transmission Date: 20140711
  Serious: Yes (Other)
  Sender: FDA-Public Use
  Company Number: US-PFIZER INC-2013320815

PATIENT
  Age: 50 Year
  Sex: Female
  Weight: 63.49 kg

DRUGS (3)
  1. NEURONTIN [Suspect]
     Indication: NEURALGIA
     Dosage: 800 MG, 3X/DAY
     Route: 048
     Dates: start: 2011, end: 2013
  2. SOMA [Concomitant]
     Indication: MUSCLE DISORDER
     Dosage: UNK
  3. XANAX [Concomitant]
     Dosage: UNK, AS NEEDED

REACTIONS (3)
  - Intervertebral disc protrusion [Unknown]
  - Back disorder [Unknown]
  - Nerve injury [Unknown]
